FAERS Safety Report 18407017 (Version 1)
Quarter: 2020Q4

REPORT INFORMATION
  Report Type: Report from Study
  Country: None (occurrence: TR)
  Receive Date: 20201020
  Receipt Date: 20201020
  Transmission Date: 20210114
  Serious: Yes (Death)
  Sender: FDA-Public Use
  Company Number: TR-ABBVIE-20K-161-3616439-00

PATIENT
  Age: 80 Year
  Sex: Male
  Weight: 60 kg

DRUGS (2)
  1. DUODOPA [Suspect]
     Active Substance: CARBIDOPA\LEVODOPA
  2. DUODOPA [Suspect]
     Active Substance: CARBIDOPA\LEVODOPA
     Indication: PARKINSON^S DISEASE
     Dosage: MORNING DOSE (ML): 7.00 CONTINUOUS DOSE (ML): 3.80 EXTRA DOSE (ML):1.50
     Route: 050
     Dates: start: 20200113

REACTIONS (1)
  - Death [Fatal]

NARRATIVE: CASE EVENT DATE: 20201011
